FAERS Safety Report 16281458 (Version 1)
Quarter: 2019Q2

REPORT INFORMATION
  Report Type: Spontaneous
  Country: US (occurrence: US)
  Receive Date: 20190507
  Receipt Date: 20190507
  Transmission Date: 20190711
  Serious: No
  Sender: FDA-Public Use
  Company Number: US-PFIZER INC-2019189159

PATIENT
  Age: 66 Year
  Sex: Male
  Weight: 99.77 kg

DRUGS (1)
  1. LYRICA [Suspect]
     Active Substance: PREGABALIN
     Indication: ARTHRITIS
     Dosage: UNK
     Dates: start: 201904, end: 201904

REACTIONS (5)
  - Confusional state [Unknown]
  - Amnesia [Unknown]
  - Off label use [Unknown]
  - Product use in unapproved indication [Unknown]
  - Somnambulism [Unknown]

NARRATIVE: CASE EVENT DATE: 201904
